FAERS Safety Report 8115727-8 (Version None)
Quarter: 2011Q4

REPORT INFORMATION
  Report Type: 
  Country: None (occurrence: None)
  Receive Date: 20111227
  Receipt Date: 20110831
  Transmission Date: 20120403
  Serious: Yes (Disabling)
  Sender: FDA-Public Use
  Company Number: PHEH2011US02819

PATIENT
  Age: 41 Year
  Sex: Female
  Weight: 59 kg

DRUGS (10)
  1. GILENYA [Suspect]
     Indication: MULTIPLE SCLEROSIS
     Dosage: 0.5 MG, QD, ORAL
     Route: 048
     Dates: start: 20110301, end: 20110812
  2. ORACEA [Concomitant]
  3. VITAMIN A [Concomitant]
  4. MULTIVITAMIN [Concomitant]
  5. TRAMADOL HYDROCHLORIDE [Concomitant]
  6. PLAQUENIL [Concomitant]
  7. NABUMETONE [Concomitant]
  8. AMANTADINE HCL [Concomitant]
  9. FOLIC ACID [Concomitant]
  10. BUPROPION HCL [Concomitant]

REACTIONS (1)
  - HERPES ZOSTER [None]
